FAERS Safety Report 15425028 (Version 1)
Quarter: 2018Q4

REPORT INFORMATION
  Report Type: Spontaneous
  Country: US (occurrence: US)
  Receive Date: 20180925
  Receipt Date: 20180925
  Transmission Date: 20190204
  Serious: No
  Sender: FDA-Public Use
  Company Number: US-THERAPEUTICSMD-2018TMD00046

PATIENT
  Age: 77 Year
  Sex: Female
  Weight: 77.1 kg

DRUGS (4)
  1. BYSTOLIC [Concomitant]
     Active Substance: NEBIVOLOL HYDROCHLORIDE
  2. IMVEXXY [Suspect]
     Active Substance: ESTRADIOL
     Indication: URINARY TRACT INFECTION
     Dosage: 10 ?G, 1X/DAY EVERY MORNING
     Route: 067
     Dates: start: 20180719, end: 20180726
  3. VITAMIN D [Concomitant]
     Active Substance: CHOLECALCIFEROL
  4. IMVEXXY [Suspect]
     Active Substance: ESTRADIOL
     Dosage: 10 ?G, 1X/DAY EVERY MORNING
     Route: 067
     Dates: start: 20180802, end: 20180804

REACTIONS (5)
  - Rash macular [Recovering/Resolving]
  - Rash pruritic [Recovered/Resolved]
  - Rash erythematous [Recovered/Resolved]
  - Off label use [Recovered/Resolved]
  - Dysuria [Recovering/Resolving]

NARRATIVE: CASE EVENT DATE: 20180719
